FAERS Safety Report 24794758 (Version 2)
Quarter: 2025Q1

REPORT INFORMATION
  Report Type: Spontaneous
  Country: US (occurrence: US)
  Receive Date: 20241231
  Receipt Date: 20250124
  Transmission Date: 20250408
  Serious: Yes (Other)
  Sender: AVADEL CNS PHARMACEUTICALS, LLC
  Company Number: US-AVADEL CNS PHARMACEUTICALS, LLC-2024AVA02502

PATIENT
  Age: 31 Year
  Sex: Female
  Weight: 90.703 kg

DRUGS (11)
  1. LUMRYZ [Suspect]
     Active Substance: SODIUM OXYBATE
     Indication: Narcolepsy
     Dosage: 4.5 G, ONCE NIGHTLY
     Route: 048
     Dates: start: 20241204, end: 20241204
  2. LUMRYZ [Suspect]
     Active Substance: SODIUM OXYBATE
     Indication: Cataplexy
     Dosage: 3 G, ONCE NIGHTLY (WEIGHED USING KITCHEN SCALE)
     Route: 048
     Dates: start: 20241207, end: 20241209
  3. LUMRYZ [Suspect]
     Active Substance: SODIUM OXYBATE
     Dosage: 3 G, ONCE NIGHTLY (WEIGHED USING KITCHEN SCALE)
     Route: 048
     Dates: start: 20241224
  4. LUMRYZ [Suspect]
     Active Substance: SODIUM OXYBATE
     Dosage: 4.5 G, ONCE NIGHTLY AT BEDTIME
     Route: 048
     Dates: end: 202501
  5. LUMRYZ [Suspect]
     Active Substance: SODIUM OXYBATE
     Indication: Narcolepsy
     Dosage: 6 G, ONCE NIGHTLY AT BEDTIME
     Route: 048
     Dates: start: 202501, end: 202501
  6. LUMRYZ [Suspect]
     Active Substance: SODIUM OXYBATE
     Indication: Cataplexy
  7. SYNTHROID [Concomitant]
     Active Substance: LEVOTHYROXINE SODIUM
  8. VITAMIN D NOS [Concomitant]
     Active Substance: CHOLECALCIFEROL\ERGOCALCIFEROL
  9. WOMEN^S MULTIVITAMIN [Concomitant]
  10. .ALPHA.-TOCOPHEROL [Concomitant]
     Active Substance: .ALPHA.-TOCOPHEROL
  11. PROBIOTICS NOS [Concomitant]
     Active Substance: PROBIOTICS NOS

REACTIONS (11)
  - Syncope [Recovered/Resolved]
  - Illness [Unknown]
  - Cough [Unknown]
  - Nasopharyngitis [Unknown]
  - Presyncope [Recovered/Resolved]
  - Upper respiratory tract infection [Unknown]
  - Respiration abnormal [Unknown]
  - Abdominal discomfort [Unknown]
  - Nausea [Unknown]
  - Somnolence [Unknown]
  - Wrong technique in product usage process [Recovered/Resolved]

NARRATIVE: CASE EVENT DATE: 20241201
